FAERS Safety Report 11518077 (Version 1)
Quarter: 2015Q3

REPORT INFORMATION
  Report Type: Spontaneous
  Country: US (occurrence: US)
  Receive Date: 20150917
  Receipt Date: 20150917
  Transmission Date: 20151125
  Serious: No
  Sender: FDA-Public Use
  Company Number: US-GALDERMA-US15005525

PATIENT
  Sex: Female

DRUGS (1)
  1. MIRVASO [Suspect]
     Active Substance: BRIMONIDINE TARTRATE
     Dosage: 0.33%
     Route: 061

REACTIONS (3)
  - Erythema [Recovering/Resolving]
  - Swelling face [Recovering/Resolving]
  - Skin burning sensation [Recovering/Resolving]
